FAERS Safety Report 15322171 (Version 2)
Quarter: 2018Q4

REPORT INFORMATION
  Report Type: Report from Study
  Country: US (occurrence: US)
  Receive Date: 20180827
  Receipt Date: 20181017
  Transmission Date: 20190204
  Serious: Yes (Hospitalization, Other)
  Sender: FDA-Public Use
  Company Number: US-BAYER-2018-156179

PATIENT
  Age: 37 Year
  Sex: Female

DRUGS (10)
  1. BETASERON [Suspect]
     Active Substance: INTERFERON BETA-1B
     Indication: MULTIPLE SCLEROSIS
     Dosage: 8 MIU, QOD
     Route: 058
     Dates: start: 19940912, end: 20180602
  2. PROZAC [Concomitant]
     Active Substance: FLUOXETINE HYDROCHLORIDE
  3. BETASERON [Suspect]
     Active Substance: INTERFERON BETA-1B
     Indication: MULTIPLE SCLEROSIS
     Dosage: 0.3 MG, QOD
     Route: 058
  4. LEVETIRACETAM. [Concomitant]
     Active Substance: LEVETIRACETAM
  5. MOBIC [Concomitant]
     Active Substance: MELOXICAM
  6. PRILOSEC [Concomitant]
     Active Substance: OMEPRAZOLE MAGNESIUM
  7. XANAX [Concomitant]
     Active Substance: ALPRAZOLAM
  8. CARVEDILOL. [Concomitant]
     Active Substance: CARVEDILOL
  9. CIPROFLOXACIN. [Concomitant]
     Active Substance: CIPROFLOXACIN
     Indication: URINARY TRACT INFECTION
     Dosage: 2*250 MG
     Route: 048
  10. LISINOPRIL. [Concomitant]
     Active Substance: LISINOPRIL

REACTIONS (3)
  - Seizure [Recovered/Resolved]
  - Lower limb fracture [Recovered/Resolved]
  - Seizure [None]

NARRATIVE: CASE EVENT DATE: 1996
